FAERS Safety Report 19389762 (Version 3)
Quarter: 2021Q3

REPORT INFORMATION
  Report Type: Spontaneous
  Country: ES (occurrence: ES)
  Receive Date: 20210608
  Receipt Date: 20210723
  Transmission Date: 20211014
  Serious: Yes (Death, Other)
  Sender: FDA-Public Use
  Company Number: ES-ASTELLAS-2021US020634

PATIENT
  Age: 60 Year
  Sex: Female

DRUGS (3)
  1. AZACITIDINE. [Suspect]
     Active Substance: AZACITIDINE
     Indication: ALLOGENIC STEM CELL TRANSPLANTATION
     Dosage: UNK UNK, UNKNOWN FREQ.
     Route: 065
  2. GILTERITINIB [Suspect]
     Active Substance: GILTERITINIB
     Indication: FLT3 GENE MUTATION
     Route: 065
  3. GILTERITINIB [Suspect]
     Active Substance: GILTERITINIB
     Indication: ACUTE MYELOID LEUKAEMIA
     Route: 065

REACTIONS (2)
  - Product use issue [Unknown]
  - Pneumonia fungal [Fatal]
